FAERS Safety Report 16491552 (Version 1)
Quarter: 2019Q2

REPORT INFORMATION
  Report Type: Spontaneous
  Country: FR (occurrence: FR)
  Receive Date: 20190628
  Receipt Date: 20190628
  Transmission Date: 20190711
  Serious: Yes (Hospitalization)
  Sender: FDA-Public Use
  Company Number: FR-ROCHE-2343792

PATIENT
  Sex: Male
  Weight: 3 kg

DRUGS (9)
  1. CIMZIA [Suspect]
     Active Substance: CERTOLIZUMAB PEGOL
     Indication: PRODUCT USED FOR UNKNOWN INDICATION
     Route: 064
     Dates: start: 20151118, end: 201511
  2. HUMAN IMMUNOGLOBULIN [Suspect]
     Active Substance: HUMAN IMMUNOGLOBULIN G
     Route: 064
     Dates: start: 20151128, end: 20151128
  3. ROACTEMRA [Suspect]
     Active Substance: TOCILIZUMAB
     Indication: PRODUCT USED FOR UNKNOWN INDICATION
     Route: 064
     Dates: start: 20151012, end: 20151109
  4. KINERET [Suspect]
     Active Substance: ANAKINRA
     Indication: PRODUCT USED FOR UNKNOWN INDICATION
     Route: 064
     Dates: end: 20151008
  5. HUMAN IMMUNOGLOBULIN [Suspect]
     Active Substance: HUMAN IMMUNOGLOBULIN G
     Indication: PRODUCT USED FOR UNKNOWN INDICATION
     Route: 064
     Dates: start: 20151129, end: 20151129
  6. PREDNISONE. [Suspect]
     Active Substance: PREDNISONE
     Indication: PRODUCT USED FOR UNKNOWN INDICATION
     Dosage: 500 MG BOLUS
     Route: 064
     Dates: start: 20151128
  7. PREDNISONE. [Suspect]
     Active Substance: PREDNISONE
     Dosage: LAST DOSE 17/NOV/2015
     Route: 064
     Dates: start: 2015
  8. PERFALGAN [Suspect]
     Active Substance: ACETAMINOPHEN
     Indication: PRODUCT USED FOR UNKNOWN INDICATION
     Dosage: LAST DOSE /NOV/2015
     Route: 064
     Dates: start: 20151129
  9. KINERET [Suspect]
     Active Substance: ANAKINRA
     Route: 064
     Dates: start: 2015, end: 20151104

REACTIONS (8)
  - Hypocalcaemia [Recovered/Resolved]
  - Foetal exposure during pregnancy [Unknown]
  - Infection [Unknown]
  - Hepatosplenomegaly [Recovering/Resolving]
  - Pyrexia [Recovering/Resolving]
  - Bradycardia foetal [Recovered/Resolved]
  - Gastrointestinal disorder [Recovering/Resolving]
  - Thrombocytopenia [Recovering/Resolving]

NARRATIVE: CASE EVENT DATE: 2015
